FAERS Safety Report 15131615 (Version 1)
Quarter: 2018Q4

REPORT INFORMATION
  Report Type: Spontaneous
  Country: US (occurrence: US)
  Receive Date: 20180711
  Receipt Date: 20180711
  Transmission Date: 20190204
  Serious: No
  Sender: FDA-Public Use
  Company Number: US-CEDIPROF, INC.-2051786

PATIENT
  Age: 75 Year
  Sex: Female

DRUGS (3)
  1. LEVO-T [Suspect]
     Active Substance: LEVOTHYROXINE SODIUM
  2. GAS-X [Suspect]
     Active Substance: DIMETHICONE
  3. CLONAZEPAM. [Suspect]
     Active Substance: CLONAZEPAM

REACTIONS (4)
  - Frequent bowel movements [Unknown]
  - Flatulence [Unknown]
  - Abdominal pain upper [Unknown]
  - Fatigue [Unknown]
